FAERS Safety Report 18313281 (Version 1)
Quarter: 2020Q3

REPORT INFORMATION
  Report Type: Spontaneous
  Country: FR (occurrence: FR)
  Receive Date: 20200925
  Receipt Date: 20200925
  Transmission Date: 20201103
  Serious: Yes (Hospitalization)
  Sender: FDA-Public Use
  Company Number: FR-CADILA HEALTHCARE LIMITED-FR-ZYDUS-029989

PATIENT

DRUGS (6)
  1. QUETIAPINE. [Suspect]
     Active Substance: QUETIAPINE
     Indication: BORDERLINE PERSONALITY DISORDER
     Dosage: (INTERVAL :1 DAYS)
     Route: 064
  2. SERESTA [Suspect]
     Active Substance: OXAZEPAM
     Indication: BORDERLINE PERSONALITY DISORDER
     Dosage: 150 MILLIGRAM,(INTERVAL :1 DAYS)
     Route: 064
  3. HALDOL [Suspect]
     Active Substance: HALOPERIDOL
     Indication: BORDERLINE PERSONALITY DISORDER
     Dosage: 10 MILLIGRAM,(INTERVAL :1 DAYS)
     Route: 064
  4. LEVOTHYROX [Concomitant]
     Active Substance: LEVOTHYROXINE
     Indication: BORDERLINE PERSONALITY DISORDER
     Dosage: 200 MILLIGRAM,(INTERVAL :1 DAYS)
     Route: 064
  5. SERTRALINE [Suspect]
     Active Substance: SERTRALINE HYDROCHLORIDE
     Indication: BORDERLINE PERSONALITY DISORDER
     Dosage: 200 MILLIGRAM,(INTERVAL :1 DAYS)
     Route: 064
  6. ATARAX [Suspect]
     Active Substance: HYDROXYZINE HYDROCHLORIDE
     Indication: BORDERLINE PERSONALITY DISORDER
     Dosage: 50 MILLIGRAM,(INTERVAL :1 DAYS)
     Route: 064

REACTIONS (1)
  - Tremor [Recovered/Resolved]

NARRATIVE: CASE EVENT DATE: 20180826
